FAERS Safety Report 8478685-2 (Version None)
Quarter: 2012Q2

REPORT INFORMATION
  Report Type: 
  Country: None (occurrence: None)
  Receive Date: 20120629
  Receipt Date: 20120627
  Transmission Date: 20120825
  Serious: Yes (Other)
  Sender: FDA-Public Use
  Company Number: CN-ROCHE-1082428

PATIENT
  Age: 59 Year
  Sex: Female
  Weight: 85 kg

DRUGS (2)
  1. CISPLATIN [Suspect]
     Indication: BREAST CANCER METASTATIC
     Route: 041
     Dates: start: 20120401, end: 20120601
  2. XELODA [Suspect]
     Indication: BREAST CANCER METASTATIC
     Route: 048
     Dates: start: 20120401

REACTIONS (1)
  - METASTASES TO LIVER [None]
